FAERS Safety Report 13281734 (Version 1)
Quarter: 2017Q1

REPORT INFORMATION
  Report Type: Spontaneous
  Country: US (occurrence: US)
  Receive Date: 20170301
  Receipt Date: 20170301
  Transmission Date: 20170428
  Serious: No
  Sender: FDA-Public Use
  Company Number: US-PFIZER INC-2016396425

PATIENT
  Age: 61 Year
  Sex: Male

DRUGS (20)
  1. PANTOPRAZOLE [Concomitant]
     Active Substance: PANTOPRAZOLE SODIUM
     Dosage: 40 MG, 1 TAB DAILY
     Route: 048
     Dates: start: 20160623
  2. FOLIC ACID. [Concomitant]
     Active Substance: FOLIC ACID
     Dosage: 1 MG, 1X/DAY
     Route: 048
     Dates: start: 20160804
  3. PREDNISONE. [Concomitant]
     Active Substance: PREDNISONE
     Dosage: 50 MG, 2X/DAY
     Route: 048
     Dates: start: 20160331
  4. PROMETHAZINE [Concomitant]
     Active Substance: PROMETHAZINE\PROMETHAZINE HYDROCHLORIDE
     Indication: NAUSEA
     Dosage: 12.5 MG, AS NEEDED, (EVERY 8 HOURS)
     Route: 048
     Dates: start: 20160802
  5. PROMETHAZINE [Concomitant]
     Active Substance: PROMETHAZINE\PROMETHAZINE HYDROCHLORIDE
     Dosage: 25 MG, AS NEEDED, (EVERY 6 HOURS)
     Route: 048
     Dates: start: 20160427
  6. CARAFATE [Concomitant]
     Active Substance: SUCRALFATE
     Dosage: 10 ML, 4X/DAY (100MG/ML SUSPENSION)
     Route: 048
     Dates: start: 20161017
  7. ESOMEPRAZOLE MAGNESIUM. [Concomitant]
     Active Substance: ESOMEPRAZOLE MAGNESIUM
     Dosage: 40 MG, DAILY
     Route: 048
  8. LANOLIN. [Concomitant]
     Active Substance: LANOLIN
     Dosage: UNK
     Route: 061
  9. ICAR-C [Concomitant]
     Dosage: 1 DF, 2X/DAY, [ASCORBIC ACID 250 MG] / [IRON PENTACARBONYL 100 MG]
     Route: 048
     Dates: start: 20160406
  10. COUMADIN [Concomitant]
     Active Substance: WARFARIN SODIUM
     Dosage: 5 MG, DAILY (TUESDAY AND THURSDAY TAKES 1 1/2 TABLETS)
     Route: 048
  11. COUMADIN [Concomitant]
     Active Substance: WARFARIN SODIUM
     Dosage: 7.5 MG, UNK (TUESDAY AND THURSDAY TAKES 1 1/2 TABLETS)
  12. ICAR-C [Concomitant]
     Dosage: 1 DF, 2X/DAY, [ASCORBIC ACID 250 MG] / [IRON PENTACARBONYL 100 MG]
     Route: 048
     Dates: start: 20160701
  13. METOPROLOL TARTRATE. [Concomitant]
     Active Substance: METOPROLOL TARTRATE
     Dosage: 100 MG, DAILY
     Route: 048
  14. INLYTA [Suspect]
     Active Substance: AXITINIB
     Indication: RENAL CANCER
     Dosage: 5 MG, 2X/DAY
     Route: 048
     Dates: start: 20160802
  15. LEVOTHYROXINE. [Concomitant]
     Active Substance: LEVOTHYROXINE
     Dosage: 50 UG, DAILY
     Route: 048
     Dates: start: 20160331
  16. PREDNISONE. [Concomitant]
     Active Substance: PREDNISONE
     Dosage: 20 MG, UNK
  17. ONDANSETRON HCL [Concomitant]
     Active Substance: ONDANSETRON HYDROCHLORIDE
     Indication: NAUSEA
     Dosage: 8 MG, AS NEEDED, (EVERY 8 HOURS PRN)
     Route: 048
     Dates: start: 20140703
  18. ONDANSETRON HCL [Concomitant]
     Active Substance: ONDANSETRON HYDROCHLORIDE
     Indication: VOMITING
  19. MOUTH WASH [Concomitant]
     Dosage: UNK, 5-10 CC MUCOUS MEMBRANE SWISH/SPIT EVERY 1 HR OR SWISH/SWALLOW EVERY 4 HR
  20. LEVOTHYROXINE. [Concomitant]
     Active Substance: LEVOTHYROXINE
     Dosage: 25 UG, (0.5 TAB) DAILY
     Route: 048
     Dates: start: 20161018

REACTIONS (1)
  - Neoplasm progression [Unknown]
